FAERS Safety Report 9832620 (Version 2)
Quarter: 2014Q1

REPORT INFORMATION
  Report Type: Spontaneous
  Country: US (occurrence: US)
  Receive Date: 20140121
  Receipt Date: 20140121
  Transmission Date: 20141002
  Serious: Yes (Death, Hospitalization)
  Sender: FDA-Public Use
  Company Number: US-MYLANLABS-2014S1000842

PATIENT
  Age: 43 Year
  Sex: Male
  Weight: 89.1 kg

DRUGS (9)
  1. TRAZODONE [Concomitant]
     Route: 048
  2. ALLOPURINOL TABLETS [Suspect]
     Indication: GOUT
     Route: 048
  3. REVATIO [Suspect]
     Route: 048
  4. COREG [Concomitant]
     Route: 048
  5. OMEPRAZOLE [Concomitant]
     Route: 048
  6. ATIVAN [Concomitant]
     Indication: ANXIETY
     Dosage: PRN
     Route: 048
  7. LASIX [Concomitant]
     Route: 048
  8. KCL [Concomitant]
     Route: 048
  9. OXYCODONE [Concomitant]
     Indication: PAIN

REACTIONS (2)
  - Stevens-Johnson syndrome [Fatal]
  - Laboratory test abnormal [Not Recovered/Not Resolved]
